FAERS Safety Report 9278830 (Version 1)
Quarter: 2013Q2

REPORT INFORMATION
  Report Type: Spontaneous
  Country: US (occurrence: None)
  Receive Date: 20130506
  Receipt Date: 20130506
  Transmission Date: 20140414
  Serious: No
  Sender: FDA-Public Use
  Company Number: None

PATIENT
  Age: 57 Year
  Sex: Male

DRUGS (2)
  1. SULFAMETHOXAZOLE/TRIMETHOPRIM [Suspect]
     Dates: start: 20130118, end: 20130201
  2. SULFAMETHOXAZOLE/TRIMETHOPRIM [Suspect]
     Dates: start: 20130118, end: 20130201

REACTIONS (1)
  - Stevens-Johnson syndrome [None]
